FAERS Safety Report 23283613 (Version 1)
Quarter: 2023Q4

REPORT INFORMATION
  Report Type: Spontaneous
  Country: AT (occurrence: AT)
  Receive Date: 20231211
  Receipt Date: 20231211
  Transmission Date: 20240110
  Serious: Yes (Other)
  Sender: FDA-Public Use
  Company Number: AT-009507513-2304AUT000376

PATIENT
  Age: 63 Year
  Sex: Female

DRUGS (3)
  1. PACLITAXEL [Suspect]
     Active Substance: PACLITAXEL
     Indication: Non-small cell lung cancer
     Dosage: UNK
  2. CARBOPLATIN [Suspect]
     Active Substance: CARBOPLATIN
     Indication: Non-small cell lung cancer
     Dosage: UNK
  3. PEMBROLIZUMAB [Suspect]
     Active Substance: PEMBROLIZUMAB
     Indication: Non-small cell lung cancer
     Dosage: UNK?PDF TERMID: PDF-11201000?FOA: SOLUTION FOR INJECTION

REACTIONS (10)
  - Polymyalgia rheumatica [Unknown]
  - Blood thyroid stimulating hormone decreased [Unknown]
  - Arthralgia [Unknown]
  - Headache [Unknown]
  - Blood prolactin decreased [Unknown]
  - Thyroxine free decreased [Unknown]
  - Fatigue [Unknown]
  - Blood corticotrophin decreased [Unknown]
  - Hypophysitis [Unknown]
  - Visual impairment [Unknown]
